FAERS Safety Report 5662857-6 (Version None)
Quarter: 2008Q1

REPORT INFORMATION
  Report Type: 
  Country: None (occurrence: None)
  Receive Date: 20080307
  Receipt Date: 20080303
  Transmission Date: 20080703
  Serious: Yes (Death)
  Sender: FDA-Public Use
  Company Number: 163-21880-07110966

PATIENT
  Age: 60 Year
  Sex: Female

DRUGS (4)
  1. REVLIMID [Suspect]
     Indication: MULTIPLE MYELOMA
     Dosage: QD, ORAL; 15 MG, 14 DAYS ON, 7 DAYS OFF, ORAL
     Route: 048
     Dates: start: 20070710, end: 20070101
  2. REVLIMID [Suspect]
     Indication: MULTIPLE MYELOMA
     Dosage: QD, ORAL; 15 MG, 14 DAYS ON, 7 DAYS OFF, ORAL
     Route: 048
     Dates: start: 20070101, end: 20071031
  3. VELCADE [Concomitant]
  4. DEXAMETHASONE TAB [Concomitant]

REACTIONS (1)
  - BLOOD COUNT ABNORMAL [None]
